FAERS Safety Report 11325096 (Version 1)
Quarter: 2015Q3

REPORT INFORMATION
  Report Type: Other
  Country: GB (occurrence: GB)
  Receive Date: 20150730
  Receipt Date: 20150730
  Transmission Date: 20151125
  Serious: Yes (Other)
  Sender: FDA-Public Use
  Company Number: GB-PERRIGO-15GB007556

PATIENT
  Age: 28 Year
  Sex: Male
  Weight: 137 kg

DRUGS (2)
  1. LORATADINE 16028/0080 10 MG [Suspect]
     Active Substance: LORATADINE
     Indication: SEASONAL ALLERGY
     Dosage: 10 MG, UNK
     Route: 048
  2. MODAFINIL. [Suspect]
     Active Substance: MODAFINIL
     Indication: NARCOLEPSY
     Dosage: 100 MG, BID
     Route: 048

REACTIONS (5)
  - Lacrimation increased [Recovered/Resolved]
  - Rhinorrhoea [Recovered/Resolved]
  - Drug interaction [Recovered/Resolved]
  - Condition aggravated [Unknown]
  - Sneezing [Recovered/Resolved]

NARRATIVE: CASE EVENT DATE: 20150514
